FAERS Safety Report 9772095 (Version 1)
Quarter: 2013Q4

REPORT INFORMATION
  Report Type: Report from Study
  Country: CA (occurrence: CA)
  Receive Date: 20131219
  Receipt Date: 20131219
  Transmission Date: 20140711
  Serious: Yes (Other)
  Sender: FDA-Public Use
  Company Number: CA-JNJFOC-20131208949

PATIENT
  Sex: Female
  Weight: 52.7 kg

DRUGS (9)
  1. REMICADE [Suspect]
     Indication: CROHN^S DISEASE
     Route: 042
  2. IMURAN [Concomitant]
     Route: 065
  3. ATENOLOL [Concomitant]
     Route: 065
  4. BUSCOPAN [Concomitant]
     Route: 065
  5. TYLENOL [Concomitant]
     Route: 065
  6. LORAZEPAM [Concomitant]
     Route: 065
  7. ZOPICLONE [Concomitant]
     Route: 065
  8. ASA [Concomitant]
     Route: 065
  9. PARIET [Concomitant]
     Route: 065

REACTIONS (3)
  - Gastrooesophageal reflux disease [Recovering/Resolving]
  - Intestinal stenosis [Unknown]
  - Cystitis [Recovered/Resolved]
